FAERS Safety Report 7471379-1 (Version None)
Quarter: 2011Q2

REPORT INFORMATION
  Report Type: 
  Country: None (occurrence: None)
  Receive Date: 20110510
  Receipt Date: 20110428
  Transmission Date: 20111010
  Serious: Yes (Hospitalization)
  Sender: FDA-Public Use
  Company Number: CA-ELI_LILLY_AND_COMPANY-CA201104007833

PATIENT
  Sex: Female

DRUGS (14)
  1. ZYPREXA [Suspect]
     Indication: BIPOLAR DISORDER
     Dosage: 15 MG, EACH EVENING
     Dates: start: 20030310, end: 20050101
  2. BUPROPION [Concomitant]
  3. COGENTIN [Concomitant]
  4. ZYPREXA ZYDIS [Suspect]
     Indication: BIPOLAR DISORDER
  5. RISPERDAL [Concomitant]
  6. ATIVAN [Concomitant]
  7. EFFEXOR XR [Concomitant]
  8. ZYPREXA [Suspect]
     Dosage: 10 MG, UNK
     Dates: start: 20030310
  9. IMOVANE [Concomitant]
  10. APO-METHOPRAZINE [Concomitant]
  11. TEMAZ [Concomitant]
  12. CYTOMEL [Concomitant]
  13. PAXIL [Concomitant]
  14. HALDOL [Concomitant]

REACTIONS (7)
  - THYROID CANCER [None]
  - HYPERGLYCAEMIA [None]
  - TYPE 2 DIABETES MELLITUS [None]
  - TRANSIENT ISCHAEMIC ATTACK [None]
  - BLOOD TRIGLYCERIDES INCREASED [None]
  - WEIGHT INCREASED [None]
  - BLOOD CHOLESTEROL INCREASED [None]
